FAERS Safety Report 17494617 (Version 3)
Quarter: 2024Q4

REPORT INFORMATION
  Report Type: Report from Study
  Country: US (occurrence: US)
  Receive Date: 20200303
  Receipt Date: 20241028
  Transmission Date: 20250115
  Serious: Yes (Death)
  Sender: AMNEAL
  Company Number: US-AMNEAL PHARMACEUTICALS-2019-AMRX-02370

PATIENT
  Age: 68 Year
  Sex: Female

DRUGS (5)
  1. CARBIDOPA\LEVODOPA [Suspect]
     Active Substance: CARBIDOPA\LEVODOPA
     Indication: Parkinson^s disease
     Dosage: 48.75-195MG, 1 CAPSULES, QID (AT 7AM, 12PM, 5PM, AND 10PM)
     Route: 048
     Dates: start: 2018
  2. CARBIDOPA\LEVODOPA [Suspect]
     Active Substance: CARBIDOPA\LEVODOPA
     Dosage: 61.25-245MG, 1 CAPSULES, QID (AT 7AM, 12PM, 5PM, AND 10PM)
     Route: 048
     Dates: start: 2018
  3. CARBIDOPA\LEVODOPA [Suspect]
     Active Substance: CARBIDOPA\LEVODOPA
     Dosage: 48.75-195MG, 1 CAPSULES, QID
     Route: 048
  4. GABAPENTIN [Suspect]
     Active Substance: GABAPENTIN
     Indication: Arthralgia
     Dosage: 100 MILLIGRAM, TID
     Route: 065
  5. CARBIDOPA AND LEVODOPA [Concomitant]
     Active Substance: CARBIDOPA\LEVODOPA
     Indication: Parkinson^s disease
     Dosage: UNK; TAKING IN BETWEEN RYTARY
     Route: 065
     Dates: start: 20201201

REACTIONS (9)
  - Death [Fatal]
  - Influenza [Unknown]
  - Sinusitis [Unknown]
  - Therapeutic response shortened [Not Recovered/Not Resolved]
  - Gastrointestinal disorder [Unknown]
  - Joint swelling [Recovering/Resolving]
  - Malaise [Unknown]
  - Decreased appetite [Unknown]
  - Weight decreased [Unknown]

NARRATIVE: CASE EVENT DATE: 20191016
